FAERS Safety Report 14741063 (Version 3)
Quarter: 2018Q4

REPORT INFORMATION
  Report Type: Spontaneous
  Country: US (occurrence: US)
  Receive Date: 20180410
  Receipt Date: 20181205
  Transmission Date: 20190204
  Serious: Yes (Death)
  Sender: FDA-Public Use
  Company Number: US-APOTEX-2018AP009695

PATIENT
  Sex: Male

DRUGS (8)
  1. CEFEPIME [Suspect]
     Active Substance: CEFEPIME HYDROCHLORIDE
     Indication: SEPSIS
     Dosage: UNK
     Route: 065
     Dates: start: 2017
  2. ACYCLOVIR. [Suspect]
     Active Substance: ACYCLOVIR
     Indication: ESCHERICHIA INFECTION
  3. GENTAMICIN                         /00047102/ [Suspect]
     Active Substance: GENTAMICIN
     Indication: SEPSIS
     Dosage: UNK
     Route: 065
     Dates: start: 2017
  4. AMPICILLIN [Suspect]
     Active Substance: AMPICILLIN
     Indication: ESCHERICHIA INFECTION
  5. GENTAMICIN                         /00047102/ [Suspect]
     Active Substance: GENTAMICIN
     Indication: ESCHERICHIA INFECTION
  6. CEFEPIME [Suspect]
     Active Substance: CEFEPIME HYDROCHLORIDE
     Indication: ESCHERICHIA INFECTION
  7. ACYCLOVIR. [Suspect]
     Active Substance: ACYCLOVIR
     Indication: SEPSIS
     Dosage: UNK
     Route: 065
     Dates: start: 2017
  8. AMPICILLIN [Suspect]
     Active Substance: AMPICILLIN
     Indication: SEPSIS
     Dosage: UNK
     Route: 065
     Dates: start: 2017

REACTIONS (1)
  - Drug ineffective [Fatal]

NARRATIVE: CASE EVENT DATE: 2017
